FAERS Safety Report 6219117-4 (Version None)
Quarter: 2009Q2

REPORT INFORMATION
  Report Type: 
  Country: None (occurrence: None)
  Receive Date: 20090605
  Receipt Date: 20090526
  Transmission Date: 20091009
  Serious: Yes (Other)
  Sender: FDA-Public Use
  Company Number: DSA_33625_2009

PATIENT
  Sex: Female
  Weight: 55.7924 kg

DRUGS (8)
  1. XENAZINE [Suspect]
     Indication: HUNTINGTON'S CHOREA
     Dosage: (12.5 MG BID) , (12.5 MG TID)
     Dates: start: 20090127, end: 20090429
  2. XENAZINE [Suspect]
     Indication: HUNTINGTON'S CHOREA
     Dosage: (12.5 MG BID) , (12.5 MG TID)
     Dates: start: 20090430, end: 20090505
  3. SEROQUEL [Concomitant]
  4. HALDOL [Concomitant]
  5. KLONOPIN [Concomitant]
  6. TRAZODONE HCL [Concomitant]
  7. ABILIFY [Concomitant]
  8. PREMARIN [Concomitant]

REACTIONS (11)
  - ALANINE AMINOTRANSFERASE INCREASED [None]
  - ASPARTATE AMINOTRANSFERASE INCREASED [None]
  - BLOOD ALBUMIN DECREASED [None]
  - BLOOD ALKALINE PHOSPHATASE INCREASED [None]
  - CYTOMEGALOVIRUS TEST POSITIVE [None]
  - GAMMA-GLUTAMYLTRANSFERASE INCREASED [None]
  - IRON BINDING CAPACITY TOTAL DECREASED [None]
  - LABORATORY TEST INTERFERENCE [None]
  - PROTEIN TOTAL DECREASED [None]
  - SERUM FERRITIN INCREASED [None]
  - TRANSFERRIN SATURATION INCREASED [None]
